FAERS Safety Report 8274322-0 (Version None)
Quarter: 2012Q2

REPORT INFORMATION
  Report Type: 
  Country: None (occurrence: None)
  Receive Date: 20120411
  Receipt Date: 20120403
  Transmission Date: 20120825
  Serious: Yes (Death, Hospitalization)
  Sender: FDA-Public Use
  Company Number: FR-ROCHE-799529

PATIENT
  Sex: Male
  Weight: 47 kg

DRUGS (3)
  1. AVASTIN [Suspect]
     Indication: CHEMOTHERAPY
     Route: 065
     Dates: start: 20110808, end: 20110808
  2. PEMETREXED DISODIUM [Suspect]
     Indication: CHEMOTHERAPY
     Route: 065
     Dates: start: 20110808, end: 20110808
  3. CISPLATIN [Suspect]
     Indication: CHEMOTHERAPY
     Route: 065
     Dates: start: 20110808, end: 20110808

REACTIONS (2)
  - DECREASED APPETITE [None]
  - DEATH [None]
